FAERS Safety Report 9101874 (Version 1)
Quarter: 2013Q1

REPORT INFORMATION
  Report Type: Spontaneous
  Country: AT (occurrence: AT)
  Receive Date: 20130218
  Receipt Date: 20130218
  Transmission Date: 20140127
  Serious: Yes (Hospitalization)
  Sender: FDA-Public Use
  Company Number: AT-ASTRAZENECA-2013SE09277

PATIENT
  Age: 69 Year
  Sex: Female
  Weight: 78.8 kg

DRUGS (21)
  1. NEXIUM [Suspect]
     Route: 048
     Dates: start: 201211
  2. BLOPRESS [Suspect]
     Route: 048
     Dates: start: 201212
  3. DIAMICRON MR [Suspect]
     Route: 048
     Dates: start: 201211
  4. THROMBO ASS [Suspect]
     Route: 048
     Dates: start: 201212
  5. MIRTABENE [Suspect]
     Route: 065
     Dates: start: 20130111, end: 20130114
  6. MIRTABENE [Suspect]
     Route: 065
     Dates: start: 20130115
  7. ZOLDEM [Suspect]
     Route: 065
     Dates: start: 201211
  8. XANOR [Suspect]
     Route: 065
     Dates: start: 20130114, end: 20130128
  9. XANOR [Suspect]
     Route: 065
     Dates: end: 20130129
  10. CONCOR [Suspect]
     Route: 065
     Dates: start: 201212
  11. MOTILIUM [Suspect]
     Route: 065
     Dates: start: 201212
  12. BURONIL [Suspect]
     Route: 065
     Dates: start: 20130121, end: 20130124
  13. BURONIL [Suspect]
     Route: 065
     Dates: start: 20130125, end: 20130125
  14. ZOFRAN [Suspect]
     Route: 065
     Dates: start: 201211
  15. LYRICA [Suspect]
     Route: 065
     Dates: start: 20130121, end: 20130121
  16. LYRICA [Suspect]
     Route: 065
     Dates: start: 20130122
  17. JANUVIA [Suspect]
     Route: 065
     Dates: start: 201211
  18. HALDOL [Concomitant]
  19. RISPERDAL [Concomitant]
     Route: 065
     Dates: start: 201211
  20. RISPERDAL [Concomitant]
     Route: 065
     Dates: start: 20130107, end: 20130120
  21. RISPERDAL [Concomitant]
     Route: 065
     Dates: start: 20130121

REACTIONS (2)
  - Extrapyramidal disorder [Recovered/Resolved]
  - Hyperprolactinaemia [None]
